FAERS Safety Report 16047708 (Version 1)
Quarter: 2019Q1

REPORT INFORMATION
  Report Type: Spontaneous
  Country: US (occurrence: US)
  Receive Date: 20190307
  Receipt Date: 20190307
  Transmission Date: 20190418
  Serious: Yes (Other)
  Sender: FDA-Public Use
  Company Number: US-BAYER-2019-044478

PATIENT
  Age: 59 Year
  Sex: Female

DRUGS (6)
  1. TOCOPHEROL [Concomitant]
     Active Substance: TOCOPHEROL
     Dosage: 400 IU, QD
     Route: 048
  2. ALEVE [Suspect]
     Active Substance: NAPROXEN SODIUM
     Dosage: UNK
  3. CALTRATE 600+D3 PLUS MINERALS [BORON;CALCIUM;COLECALCIFEROL;COPPER [Suspect]
     Active Substance: CALCIUM\CHOLECALCIFEROL\COPPER\MAGNESIUM\MANGANESE\ZINC
     Indication: OSTEOARTHRITIS
  4. CALCIUM CARBONATE. [Suspect]
     Active Substance: CALCIUM CARBONATE
  5. ASCORBIC ACID. [Concomitant]
     Active Substance: ASCORBIC ACID
     Dosage: 1000 MG, QD
     Route: 048
  6. LYSINE [Concomitant]
     Active Substance: LYSINE
     Dosage: 1000 MG, QD
     Route: 048

REACTIONS (4)
  - Blood pressure increased [None]
  - Weight increased [None]
  - Bone disorder [None]
  - Osteoporosis [None]
